FAERS Safety Report 6400268-6 (Version None)
Quarter: 2009Q4

REPORT INFORMATION
  Report Type: 
  Country: None (occurrence: None)
  Receive Date: 20091014
  Receipt Date: 20091005
  Transmission Date: 20100525
  Serious: Yes (Other)
  Sender: FDA-Public Use
  Company Number: US-MERCK-0910USA00966

PATIENT
  Age: 55 Year
  Sex: Male

DRUGS (3)
  1. DECADRON [Suspect]
     Route: 048
  2. DECADRON [Suspect]
     Route: 048
  3. TEMOZOLOMIDE [Concomitant]
     Route: 065

REACTIONS (4)
  - AGGRESSION [None]
  - FLAT AFFECT [None]
  - PARANOIA [None]
  - PHYSICAL ASSAULT [None]
